FAERS Safety Report 8794991 (Version 1)
Quarter: 2012Q4

REPORT INFORMATION
  Report Type: 
  Country: TH (occurrence: TH)
  Receive Date: 20120918
  Receipt Date: 20120918
  Transmission Date: 20130627
  Serious: Yes (Death)
  Sender: FDA-Public Use
  Company Number: PHHY2008TH044172

PATIENT
  Sex: Female

DRUGS (1)
  1. GLIVEC [Suspect]
     Dates: start: 20070222

REACTIONS (3)
  - Blood glucose decreased [Fatal]
  - Neoplasm progression [Fatal]
  - Malignant neoplasm progression [Fatal]
